FAERS Safety Report 8496612-9 (Version None)
Quarter: 2012Q3

REPORT INFORMATION
  Report Type: 
  Country: None (occurrence: None)
  Receive Date: 20120709
  Receipt Date: 20120705
  Transmission Date: 20120928
  Serious: Yes (Hospitalization)
  Sender: FDA-Public Use
  Company Number: US-PFIZER INC-2012161773

PATIENT
  Sex: Female
  Weight: 54.875 kg

DRUGS (9)
  1. LIPITOR [Suspect]
     Indication: BLOOD CHOLESTEROL INCREASED
     Dosage: 20 MG, UNK
  2. BONIVA [Concomitant]
     Indication: OSTEOPOROSIS
     Dosage: UNK
  3. ACETYLSALICYLIC ACID [Concomitant]
     Dosage: UNK, DAILY
  4. LIPITOR [Suspect]
     Dosage: 10 MG, UNK
  5. ZETIA [Concomitant]
     Indication: BLOOD CHOLESTEROL INCREASED
     Dosage: 10 MG, UNK
  6. XALATAN [Suspect]
     Indication: GLAUCOMA
     Dosage: 1 DROP IN LEFT EYE, DAILY, AT NIGHT
     Route: 047
  7. CALCIUM [Concomitant]
     Indication: OSTEOPOROSIS
     Dosage: UNK
  8. AZOPT [Concomitant]
     Dosage: UNK, 3X/DAY
     Route: 047
  9. LEVOTHYROXINE [Concomitant]
     Indication: THYROID DISORDER
     Dosage: UNK

REACTIONS (3)
  - HIP FRACTURE [None]
  - FALL [None]
  - UPPER LIMB FRACTURE [None]
